FAERS Safety Report 4877120-0 (Version None)
Quarter: 2005Q4

REPORT INFORMATION
  Report Type: 
  Country: None (occurrence: None)
  Receive Date: 20051206
  Receipt Date: 20050809
  Transmission Date: 20060501
  Serious: No
  Sender: FDA-Public Use
  Company Number: USA0508104919

PATIENT
  Sex: Female

DRUGS (3)
  1. CYMBALTA [Suspect]
     Indication: NEUROPATHY PERIPHERAL
     Dosage: 60 MG DAY
     Dates: start: 20050401
  2. NEURONTIN [Concomitant]
  3. CRESTON (ROSUVASTATIN CALCIUM) [Concomitant]

REACTIONS (2)
  - INSOMNIA [None]
  - YAWNING [None]
